FAERS Safety Report 4821552-3 (Version None)
Quarter: 2005Q4

REPORT INFORMATION
  Report Type: 
  Country: None (occurrence: None)
  Receive Date: 20051103
  Receipt Date: 20051018
  Transmission Date: 20060501
  Serious: Yes (Death)
  Sender: FDA-Public Use
  Company Number: USA0510111256

PATIENT
  Sex: Female

DRUGS (1)
  1. PROZAC [Suspect]

REACTIONS (1)
  - COMPLETED SUICIDE [None]
